FAERS Safety Report 20957214 (Version 1)
Quarter: 2022Q2

REPORT INFORMATION
  Report Type: Spontaneous
  Country: US (occurrence: US)
  Receive Date: 20220614
  Receipt Date: 20220614
  Transmission Date: 20220721
  Serious: No
  Sender: FDA-Public Use
  Company Number: US-PFM-2021-04924

PATIENT
  Sex: Female
  Weight: 6 kg

DRUGS (3)
  1. HEMANGEOL [Suspect]
     Active Substance: PROPRANOLOL HYDROCHLORIDE
     Indication: Haemangioma
     Dosage: 2.6 ML, BID (2/DAY)
     Route: 048
     Dates: start: 20210204
  2. URSODIOL [Concomitant]
     Active Substance: URSODIOL
     Indication: Liver disorder
     Dosage: 0.9 ML, BID (2/DAY)
     Route: 065
  3. RIFAMPIN [Concomitant]
     Active Substance: RIFAMPIN
     Indication: Liver disorder
     Dosage: 3.3 ML, BID (2/DAY)
     Route: 065

REACTIONS (3)
  - Product dose omission issue [Unknown]
  - Product administered to patient of inappropriate age [Unknown]
  - Off label use [Unknown]
